FAERS Safety Report 15996672 (Version 1)
Quarter: 2019Q1

REPORT INFORMATION
  Report Type: Spontaneous
  Country: PT (occurrence: PL)
  Receive Date: 20190222
  Receipt Date: 20190222
  Transmission Date: 20190418
  Serious: Yes (Other)
  Sender: FDA-Public Use
  Company Number: PL-ASTRAZENECA-2019SE28987

PATIENT
  Age: 65 Year
  Sex: Female

DRUGS (17)
  1. ESOMEPRAZOLE. [Concomitant]
     Active Substance: ESOMEPRAZOLE MAGNESIUM
     Indication: SOMATIC SYMPTOM DISORDER
  2. OLANZAPINE. [Concomitant]
     Active Substance: OLANZAPINE
     Dosage: AS NEEDED
  3. CLONAZEPAM. [Concomitant]
     Active Substance: CLONAZEPAM
     Indication: ANXIETY DISORDER
  4. CLOBETASOL [Concomitant]
     Active Substance: CLOBETASOL
     Indication: SOMATIC SYMPTOM DISORDER
     Route: 061
  5. VENLAFAXINE [Concomitant]
     Active Substance: VENLAFAXINE HYDROCHLORIDE
  6. LAMOTRIGINE. [Concomitant]
     Active Substance: LAMOTRIGINE
     Dosage: GRADUALLY INCREASED TO UP TO 200 MG DAILY
  7. MIDAZOLAM [Concomitant]
     Active Substance: MIDAZOLAM HYDROCHLORIDE
     Dosage: AS NEEDED
  8. HYDROCHLOROTHIAZIDE. [Concomitant]
     Active Substance: HYDROCHLOROTHIAZIDE
     Indication: SOMATIC SYMPTOM DISORDER
  9. QUETIAPINE. [Suspect]
     Active Substance: QUETIAPINE
     Dosage: UP TO 200 MG DAILY
     Route: 048
  10. MONTELUKAST [Concomitant]
     Active Substance: MONTELUKAST SODIUM
     Indication: SOMATIC SYMPTOM DISORDER
  11. ZOLPIDEM [Concomitant]
     Active Substance: ZOLPIDEM\ZOLPIDEM TARTRATE
     Indication: SLEEP DISORDER
  12. SALMETEROL [Concomitant]
     Active Substance: SALMETEROL
     Indication: SOMATIC SYMPTOM DISORDER
  13. PAROXETINE. [Concomitant]
     Active Substance: PAROXETINE
  14. FLUTICASONE. [Concomitant]
     Active Substance: FLUTICASONE
     Indication: SOMATIC SYMPTOM DISORDER
  15. ALPRAZOLAM. [Concomitant]
     Active Substance: ALPRAZOLAM
     Indication: ANXIETY
  16. NEBIVOLOL. [Concomitant]
     Active Substance: NEBIVOLOL
     Indication: SOMATIC SYMPTOM DISORDER
  17. VALSARTAN. [Concomitant]
     Active Substance: VALSARTAN
     Indication: SOMATIC SYMPTOM DISORDER

REACTIONS (1)
  - Drug-induced liver injury [Unknown]
